FAERS Safety Report 11340173 (Version 2)
Quarter: 2015Q3

REPORT INFORMATION
  Report Type: Spontaneous
  Country: US (occurrence: US)
  Receive Date: 20150805
  Receipt Date: 20150910
  Transmission Date: 20151125
  Serious: Yes (Hospitalization)
  Sender: FDA-Public Use
  Company Number: US-ROCHE-1329339

PATIENT
  Age: 54 Year
  Sex: Male

DRUGS (9)
  1. RIBAVIRIN. [Suspect]
     Active Substance: RIBAVIRIN
     Route: 048
  2. PEGASYS [Suspect]
     Active Substance: PEGINTERFERON ALFA-2A
     Indication: CHRONIC HEPATITIS C
     Route: 058
     Dates: start: 20120802, end: 20131108
  3. RIBAVIRIN. [Suspect]
     Active Substance: RIBAVIRIN
     Indication: CHRONIC HEPATITIS C
     Dosage: FREQUENCY-DAILY IN TWO DIVIDED DOSES
     Route: 048
     Dates: start: 20120802, end: 201311
  4. RIBAVIRIN. [Suspect]
     Active Substance: RIBAVIRIN
     Route: 048
  5. ACETAMINOPHEN. [Concomitant]
     Active Substance: ACETAMINOPHEN
     Dosage: AS REQUIRED
     Route: 065
  6. RIBAVIRIN. [Suspect]
     Active Substance: RIBAVIRIN
     Route: 048
  7. AZIDOTHYMIDINE [Concomitant]
     Active Substance: ZIDOVUDINE
     Indication: HIV INFECTION
     Route: 065
     Dates: start: 1990
  8. PEGASYS [Suspect]
     Active Substance: PEGINTERFERON ALFA-2A
     Route: 058
     Dates: start: 200911, end: 201002
  9. PREDNISONE. [Concomitant]
     Active Substance: PREDNISONE

REACTIONS (29)
  - Dry eye [Unknown]
  - Fluid retention [Unknown]
  - Gallbladder enlargement [Unknown]
  - Viral load increased [Unknown]
  - Fatigue [Unknown]
  - Medication error [Unknown]
  - Cataract [Unknown]
  - Pyrexia [Unknown]
  - Headache [Unknown]
  - Respiratory distress [Unknown]
  - Osteoporosis [Unknown]
  - Weight increased [Unknown]
  - General physical health deterioration [Unknown]
  - Bacterial infection [Unknown]
  - Viral infection [Unknown]
  - Dry mouth [Unknown]
  - Muscle spasms [Unknown]
  - Vomiting [Unknown]
  - Hair colour changes [Unknown]
  - Productive cough [Unknown]
  - Pain [Unknown]
  - Visual acuity reduced [Unknown]
  - Oxygen saturation decreased [Unknown]
  - Dyspnoea [Unknown]
  - Abdominal pain [Unknown]
  - Weight decreased [Unknown]
  - Testicular mass [Unknown]
  - Tongue discolouration [Unknown]
  - Decreased appetite [Unknown]

NARRATIVE: CASE EVENT DATE: 200911
